FAERS Safety Report 7094550-X (Version None)
Quarter: 2010Q4

REPORT INFORMATION
  Report Type: 
  Country: None (occurrence: None)
  Receive Date: 20101110
  Receipt Date: 20101027
  Transmission Date: 20110411
  Serious: Yes (Other)
  Sender: FDA-Public Use
  Company Number: PHHY2010JP72614

PATIENT
  Sex: Female

DRUGS (9)
  1. TASIGNA [Suspect]
     Indication: CHRONIC MYELOID LEUKAEMIA
     Dosage: 400 MG, UNK
     Route: 048
     Dates: start: 20100202, end: 20100301
  2. TASIGNA [Suspect]
     Dosage: 400 MG, UNK
     Route: 047
     Dates: start: 20100508
  3. MUCOSTA [Concomitant]
     Dosage: 300 MG, UNK
     Route: 048
     Dates: start: 20100202
  4. THYRADIN S [Concomitant]
     Dosage: 12.5 UG, UNK
     Route: 048
     Dates: start: 20100312
  5. THYRADIN S [Concomitant]
     Dosage: 25 UG, UNK
     Route: 048
  6. THYRADIN S [Concomitant]
     Dosage: 100 UG, UNK
     Route: 048
  7. THYRADIN S [Concomitant]
     Dosage: 50 UG, UNK
     Route: 048
  8. THYRADIN S [Concomitant]
     Dosage: 75 UG, UNK
     Route: 048
  9. GLEEVEC [Concomitant]
     Dosage: 400 MG, UNK
     Dates: start: 20091204, end: 20091213

REACTIONS (6)
  - ALANINE AMINOTRANSFERASE INCREASED [None]
  - BLOOD GLUCOSE INCREASED [None]
  - BLOOD LACTATE DEHYDROGENASE INCREASED [None]
  - ELECTROCARDIOGRAM QT PROLONGED [None]
  - PLATELET COUNT INCREASED [None]
  - WHITE BLOOD CELL COUNT INCREASED [None]
